FAERS Safety Report 8583230-7 (Version None)
Quarter: 2012Q3

REPORT INFORMATION
  Report Type: 
  Country: None (occurrence: None)
  Receive Date: 20120727
  Receipt Date: 20120718
  Transmission Date: 20120928
  Serious: Yes (Hospitalization, Other)
  Sender: FDA-Public Use
  Company Number: ADR-2011-10530

PATIENT
  Age: 46 Year
  Sex: Female

DRUGS (1)
  1. BACLOFEN [Suspect]
     Indication: MUSCLE SPASTICITY
     Dosage: DAILY, INTRATH
     Route: 037

REACTIONS (5)
  - VOMITING [None]
  - POSTOPERATIVE ILEUS [None]
  - DRUG INEFFECTIVE [None]
  - ADHESION [None]
  - INTESTINAL OBSTRUCTION [None]
